FAERS Safety Report 24025057 (Version 1)
Quarter: 2024Q2

REPORT INFORMATION
  Report Type: Spontaneous
  Country: US (occurrence: US)
  Receive Date: 20240628
  Receipt Date: 20240628
  Transmission Date: 20240716
  Serious: No
  Sender: FDA-Public Use
  Company Number: US-SA-SAC20240517000125

PATIENT
  Age: 50 Year
  Sex: Female

DRUGS (20)
  1. KEVZARA [Suspect]
     Active Substance: SARILUMAB
     Indication: Polymyalgia rheumatica
     Dosage: 200 MG, QOW
     Route: 058
     Dates: start: 20240504
  2. GABAPENTIN [Concomitant]
     Active Substance: GABAPENTIN
  3. ALLOPURINOL [Concomitant]
     Active Substance: ALLOPURINOL
  4. INDOMETHACIN [Concomitant]
     Active Substance: INDOMETHACIN
  5. FUROSEMIDE [Concomitant]
     Active Substance: FUROSEMIDE
  6. LEVOTHYROXINE SODIUM [Concomitant]
     Active Substance: LEVOTHYROXINE SODIUM
  7. LISINOPRIL [Concomitant]
     Active Substance: LISINOPRIL
  8. ZOLPIDEM TARTRATE [Concomitant]
     Active Substance: ZOLPIDEM TARTRATE
  9. PREDNISOLONE [Concomitant]
     Active Substance: PREDNISOLONE
  10. ALBUTEROL SULFATE [Concomitant]
     Active Substance: ALBUTEROL SULFATE
  11. EPINEPHRINE [Concomitant]
     Active Substance: EPINEPHRINE
  12. ATORVASTATIN CALCIUM [Concomitant]
     Active Substance: ATORVASTATIN CALCIUM
  13. SEMGLEE (INSULIN GLARGINE-YFGN) [Concomitant]
     Active Substance: INSULIN GLARGINE\INSULIN GLARGINE-YFGN
  14. HUMALOG [Concomitant]
     Active Substance: INSULIN LISPRO
  15. OZEMPIC [Concomitant]
     Active Substance: SEMAGLUTIDE
  16. VILAZODONE [Concomitant]
     Active Substance: VILAZODONE
  17. JANUVIA [Concomitant]
     Active Substance: SITAGLIPTIN PHOSPHATE
  18. SEMUELE [Concomitant]
  19. VILAZODONE HYDROCHLORIDE [Concomitant]
     Active Substance: VILAZODONE HYDROCHLORIDE
  20. KLOR-CON [Concomitant]
     Active Substance: POTASSIUM CHLORIDE

REACTIONS (1)
  - Injection site bruising [Not Recovered/Not Resolved]

NARRATIVE: CASE EVENT DATE: 20240501
